FAERS Safety Report 7406523-5 (Version None)
Quarter: 2011Q2

REPORT INFORMATION
  Report Type: 
  Country: None (occurrence: None)
  Receive Date: 20110408
  Receipt Date: 20110408
  Transmission Date: 20111010
  Serious: Yes (Other)
  Sender: FDA-Public Use
  Company Number: None

PATIENT
  Sex: Female

DRUGS (2)
  1. DEPAKOTE [Suspect]
     Indication: BRAIN INJURY
     Dosage: TAKE 2 TABLETS ONCE A DAY PO
     Route: 048
     Dates: start: 20050101, end: 20091101
  2. DEPAKOTE [Suspect]
     Dosage: TAKE 1 TABLET ONCE A DAY PO
     Route: 048
     Dates: start: 20050101, end: 20091101

REACTIONS (10)
  - MEMORY IMPAIRMENT [None]
  - ACNE [None]
  - HYPERTENSION [None]
  - CONTUSION [None]
  - JOINT SWELLING [None]
  - OEDEMA [None]
  - SKIN HAEMORRHAGE [None]
  - MEDICATION RESIDUE [None]
  - HEPATIC ENZYME INCREASED [None]
  - ASTHENIA [None]
